FAERS Safety Report 14560749 (Version 2)
Quarter: 2018Q4

REPORT INFORMATION
  Report Type: Report from Study
  Country: US (occurrence: US)
  Receive Date: 20180222
  Receipt Date: 20181104
  Transmission Date: 20190204
  Serious: Yes (Hospitalization, Other)
  Sender: FDA-Public Use
  Company Number: US-BRISTOL-MYERS SQUIBB COMPANY-BMS-2018-008778

PATIENT
  Age: 63 Year
  Sex: Male
  Weight: 93.42 kg

DRUGS (1)
  1. ELOTUZUMAB. [Suspect]
     Active Substance: ELOTUZUMAB
     Indication: PLASMA CELL MYELOMA
     Dosage: 10 MG/KG, QWK
     Route: 042
     Dates: start: 20180111, end: 20180124

REACTIONS (10)
  - Metastases to bone [Unknown]
  - Pyrexia [Recovered/Resolved]
  - Toxic encephalopathy [Recovered/Resolved]
  - Spinal cord compression [Unknown]
  - Central nervous system mass [Recovering/Resolving]
  - Pneumonia aspiration [Recovering/Resolving]
  - Leukocytosis [Recovered/Resolved]
  - Cauda equina syndrome [Recovering/Resolving]
  - Candida infection [Recovering/Resolving]
  - Anaemia [Recovering/Resolving]

NARRATIVE: CASE EVENT DATE: 20180125
